FAERS Safety Report 6178354-8 (Version None)
Quarter: 2009Q2

REPORT INFORMATION
  Report Type: 
  Country: None (occurrence: None)
  Receive Date: 20090504
  Receipt Date: 20090428
  Transmission Date: 20091009
  Serious: Yes (Other)
  Sender: FDA-Public Use
  Company Number: AU-WYE-G03591709

PATIENT
  Age: 8 Year
  Sex: Female

DRUGS (1)
  1. CHAPSTICK LIP BALM [Suspect]
     Indication: LIP DRY
     Dosage: ONCE
     Route: 061
     Dates: start: 20090428, end: 20090428

REACTIONS (4)
  - ANAPHYLACTIC REACTION [None]
  - APPLICATION SITE IRRITATION [None]
  - APPLICATION SITE PARAESTHESIA [None]
  - APPLICATION SITE REACTION [None]
